FAERS Safety Report 12283849 (Version 1)
Quarter: 2016Q2

REPORT INFORMATION
  Report Type: Spontaneous
  Country: US (occurrence: US)
  Receive Date: 20160419
  Receipt Date: 20160419
  Transmission Date: 20160815
  Serious: No
  Sender: FDA-Public Use
  Company Number: US-BANPHARM-20154093

PATIENT
  Sex: Female

DRUGS (1)
  1. ALEVE [Suspect]
     Active Substance: NAPROXEN SODIUM
     Indication: ABDOMINAL PAIN UPPER
     Dosage: 2 DF, Q4HRS,
     Route: 048

REACTIONS (2)
  - Drug ineffective [Unknown]
  - Product use issue [Unknown]
